FAERS Safety Report 4458617-4 (Version None)
Quarter: 2004Q3

REPORT INFORMATION
  Report Type: 
  Country: None (occurrence: None)
  Receive Date: 20040917
  Receipt Date: 20031120
  Transmission Date: 20050211
  Serious: Yes (Hospitalization)
  Sender: FDA-Public Use
  Company Number: US-JNJFOC-20030707019

PATIENT
  Sex: Female

DRUGS (2)
  1. TOPAMAX [Suspect]
     Indication: MIGRAINE WITH AURA
     Dosage: SEE IMAGE
     Route: 048
     Dates: start: 20021001
  2. METHOTREXATE [Concomitant]

REACTIONS (3)
  - UNEXPECTED THERAPEUTIC DRUG EFFECT [None]
  - URTICARIA [None]
  - WEIGHT DECREASED [None]
